FAERS Safety Report 6961491-5 (Version None)
Quarter: 2010Q3

REPORT INFORMATION
  Report Type: 
  Country: None (occurrence: None)
  Receive Date: 20100823
  Receipt Date: 20100618
  Transmission Date: 20110219
  Serious: No
  Sender: FDA-Public Use
  Company Number: 007345

PATIENT
  Sex: Female

DRUGS (2)
  1. CIMZIA [Suspect]
     Indication: CROHN'S DISEASE
     Dosage: (SUBCUTANEOUS) ; (400 MG 1X/MONTH SUBCUTANEOUS)
     Route: 058
     Dates: start: 20090729, end: 20100101
  2. CIMZIA [Suspect]
     Indication: CROHN'S DISEASE
     Dosage: (SUBCUTANEOUS) ; (400 MG 1X/MONTH SUBCUTANEOUS)
     Route: 058
     Dates: start: 20100215

REACTIONS (3)
  - ABDOMINAL PAIN [None]
  - FREQUENT BOWEL MOVEMENTS [None]
  - URINARY TRACT INFECTION [None]
